FAERS Safety Report 17382983 (Version 3)
Quarter: 2020Q2

REPORT INFORMATION
  Report Type: Spontaneous
  Country: US (occurrence: US)
  Receive Date: 20200206
  Receipt Date: 20200505
  Transmission Date: 20200713
  Serious: Yes (Other)
  Sender: FDA-Public Use
  Company Number: US-PFIZER INC-2020054338

PATIENT
  Age: 49 Year
  Sex: Female

DRUGS (1)
  1. IBRANCE [Suspect]
     Active Substance: PALBOCICLIB
     Indication: BREAST CANCER FEMALE
     Dosage: 100 MG, CYCLIC(21 DAYS ON, SEVEN DAYS OFF)
     Route: 048
     Dates: start: 20200130

REACTIONS (8)
  - Abdominal pain upper [Unknown]
  - Alopecia [Unknown]
  - Peripheral swelling [Unknown]
  - Hepatic enzyme abnormal [Unknown]
  - Fatigue [Unknown]
  - Hyperkalaemia [Recovered/Resolved]
  - Blood count abnormal [Unknown]
  - White blood cell count abnormal [Unknown]

NARRATIVE: CASE EVENT DATE: 2020
